FAERS Safety Report 10198789 (Version 2)
Quarter: 2014Q2

REPORT INFORMATION
  Report Type: Spontaneous
  Country: US (occurrence: US)
  Receive Date: 20140527
  Receipt Date: 20140623
  Transmission Date: 20141212
  Serious: No
  Sender: FDA-Public Use
  Company Number: US-ROXANE LABORATORIES, INC.-2014-RO-00776RO

PATIENT
  Age: 27 Year
  Sex: Male

DRUGS (1)
  1. OXYCODONE [Suspect]
     Indication: PAIN
     Route: 065
     Dates: start: 20140510, end: 20140518

REACTIONS (2)
  - Drug ineffective [Recovered/Resolved]
  - Product quality issue [Unknown]
